FAERS Safety Report 14272229 (Version 1)
Quarter: 2017Q4

REPORT INFORMATION
  Report Type: Spontaneous
  Country: US (occurrence: US)
  Receive Date: 20171212
  Receipt Date: 20171212
  Transmission Date: 20180321
  Serious: Yes (Hospitalization, Other)
  Sender: FDA-Public Use
  Company Number: US-DRREDDYS-USA/USA/17/0094830

PATIENT
  Age: 79 Year
  Sex: Male

DRUGS (1)
  1. PRIMIDONE TABLETS [Suspect]
     Active Substance: PRIMIDONE
     Indication: TREMOR
     Route: 065

REACTIONS (2)
  - Suicide attempt [Unknown]
  - Irritability [Recovered/Resolved]
